FAERS Safety Report 8144159 (Version 6)
Quarter: 2014Q1

REPORT INFORMATION
  Report Type: Report from Study
  Country: US (occurrence: US)
  Receive Date: 20110920
  Receipt Date: 20140203
  Transmission Date: 20141002
  Serious: Yes (Other)
  Sender: FDA-Public Use
  Company Number: US-ROCHE-790603

PATIENT
  Age: 68 Year
  Sex: Female

DRUGS (2)
  1. BEVACIZUMAB [Suspect]
     Indication: AGE-RELATED MACULAR DEGENERATION
     Dosage: INJECTED IN RIGHT EYE
     Route: 050
  2. BEVACIZUMAB [Suspect]
     Indication: OFF LABEL USE

REACTIONS (18)
  - Endophthalmitis [Recovering/Resolving]
  - Iris neovascularisation [Unknown]
  - Optic atrophy [Unknown]
  - Cyclitis [Unknown]
  - Vitritis [Unknown]
  - Visual impairment [Unknown]
  - Visual acuity reduced [Unknown]
  - Visual acuity reduced [Unknown]
  - Choroiditis [Unknown]
  - Retinal detachment [Unknown]
  - Retinal haemorrhage [Unknown]
  - Retinal degeneration [Unknown]
  - Retinal degeneration [Unknown]
  - Necrotising retinitis [Unknown]
  - Retinal scar [Unknown]
  - Retinopathy proliferative [Unknown]
  - Off label use [Unknown]
  - Product quality issue [Unknown]
